FAERS Safety Report 7344552-0 (Version None)
Quarter: 2011Q1

REPORT INFORMATION
  Report Type: 
  Country: None (occurrence: None)
  Receive Date: 20110310
  Receipt Date: 20110308
  Transmission Date: 20110831
  Serious: Yes (Death, Other)
  Sender: FDA-Public Use
  Company Number: US-PFIZER INC-2010162803

PATIENT
  Age: 65 Year
  Sex: Female
  Weight: 83.9 kg

DRUGS (1)
  1. ADVIL CONGESTION RELIEF [Suspect]
     Dosage: UNK

REACTIONS (3)
  - MALAISE [None]
  - DEATH [None]
  - COLD SWEAT [None]
